FAERS Safety Report 7935856-9 (Version None)
Quarter: 2011Q4

REPORT INFORMATION
  Report Type: 
  Country: None (occurrence: None)
  Receive Date: 20111123
  Receipt Date: 20111111
  Transmission Date: 20120403
  Serious: Yes (Hospitalization)
  Sender: FDA-Public Use
  Company Number: US-ELI_LILLY_AND_COMPANY-US201108002168

PATIENT
  Sex: Female

DRUGS (22)
  1. FORTEO [Suspect]
     Indication: OSTEOPOROSIS
     Dosage: 20 UG, QD
     Route: 065
     Dates: end: 20110819
  2. CALCIUM + VITAMIN D [Concomitant]
  3. ALPRAZOLAM [Concomitant]
  4. CLORAZEPATE DIPOTASSIUM [Concomitant]
  5. LOTREL [Concomitant]
  6. ROXICODONE [Concomitant]
  7. PREDNISONE [Concomitant]
  8. MILK OF MAGNESIA TAB [Concomitant]
     Dosage: UNK, PRN
  9. DRAMAMINE [Concomitant]
     Dosage: UNK, PRN
  10. BUDESONIDE [Concomitant]
  11. MAGNESIUM OXIDE [Concomitant]
     Dosage: 1 DF, BID
  12. LEXAPRO [Concomitant]
  13. NITRO                              /00003201/ [Concomitant]
     Dosage: UNK, PRN
  14. LASIX [Concomitant]
  15. VITAMIN B-12 [Concomitant]
     Dosage: UNK, WEEKLY (1/W)
  16. MUCINEX [Concomitant]
     Dosage: UNK, PRN
  17. VITAMIN D [Concomitant]
  18. MANDELAMINE [Concomitant]
  19. IMDUR [Concomitant]
  20. IPRATROPIUM BROMIDE [Concomitant]
  21. ASCORBIC ACID [Concomitant]
  22. LORTAB [Concomitant]
     Dosage: UNK, PRN

REACTIONS (3)
  - CERVICAL VERTEBRAL FRACTURE [None]
  - FALL [None]
  - HAEMATOMA [None]
